FAERS Safety Report 8322075-X (Version None)
Quarter: 2012Q2

REPORT INFORMATION
  Report Type: 
  Country: None (occurrence: None)
  Receive Date: 20120430
  Receipt Date: 20091207
  Transmission Date: 20120825
  Serious: No
  Sender: FDA-Public Use
  Company Number: US-TEVA-2009029560

PATIENT

DRUGS (1)
  1. NUVIGIL [Suspect]
     Route: 048
     Dates: start: 20090101, end: 20090101

REACTIONS (2)
  - DYSPHAGIA [None]
  - OROPHARYNGEAL BLISTERING [None]
